FAERS Safety Report 4439709-2 (Version None)
Quarter: 2004Q3

REPORT INFORMATION
  Report Type: 
  Country: None (occurrence: None)
  Receive Date: 20040831
  Receipt Date: 20040818
  Transmission Date: 20050211
  Serious: Yes (Hospitalization)
  Sender: FDA-Public Use
  Company Number: 2004PK01405

PATIENT
  Age: 32 Year
  Sex: Female

DRUGS (5)
  1. SEROQUEL [Suspect]
     Dosage: 800 MG DAILY PO
     Route: 048
     Dates: start: 20021224, end: 20030526
  2. FLUCTINE [Suspect]
     Dosage: 10 MG DAILY PO
     Route: 048
     Dates: start: 20020901, end: 20030502
  3. FLUCTINE [Suspect]
     Dosage: 20 MG DAILY PO
     Route: 048
     Dates: start: 20021001, end: 20030502
  4. TEMESTA [Concomitant]
  5. SUPRADYN [Concomitant]

REACTIONS (3)
  - DRUG INTERACTION POTENTIATION [None]
  - LEUKOPENIA [None]
  - NEUTROPENIA [None]
